FAERS Safety Report 9645555 (Version 1)
Quarter: 2013Q4

REPORT INFORMATION
  Report Type: Report from Study
  Country: GB (occurrence: GB)
  Receive Date: 20131025
  Receipt Date: 20131025
  Transmission Date: 20140711
  Serious: Yes (Hospitalization)
  Sender: FDA-Public Use
  Company Number: GB-ABBVIE-13P-167-1159631-00

PATIENT
  Age: 28 Year
  Sex: Female
  Weight: 57.9 kg

DRUGS (4)
  1. HUMIRA [Suspect]
     Indication: PSORIASIS
     Route: 058
     Dates: start: 20100326, end: 20120408
  2. ANAESTHETICS [Concomitant]
     Indication: PRODUCT USED FOR UNKNOWN INDICATION
  3. DIPROBASE [Concomitant]
     Indication: PRODUCT USED FOR UNKNOWN INDICATION
     Dates: start: 200701
  4. SALICYLIC ACID IN WHITE SOFT PARAFFIN [Concomitant]
     Indication: PRODUCT USED FOR UNKNOWN INDICATION
     Dates: start: 20091221

REACTIONS (1)
  - Anal fissure [Unknown]
